FAERS Safety Report 13002299 (Version 1)
Quarter: 2016Q4

REPORT INFORMATION
  Report Type: Spontaneous
  Country: FR (occurrence: FR)
  Receive Date: 20161206
  Receipt Date: 20161206
  Transmission Date: 20170207
  Serious: Yes (Other)
  Sender: FDA-Public Use
  Company Number: FR-SA-2016SA218488

PATIENT
  Age: 26 Year
  Sex: Female

DRUGS (3)
  1. AUBAGIO [Suspect]
     Active Substance: TERIFLUNOMIDE
     Indication: MULTIPLE SCLEROSIS
     Route: 065
     Dates: start: 2014, end: 2014
  2. TECFIDERA [Concomitant]
     Active Substance: DIMETHYL FUMARATE
  3. EXTAVIA [Concomitant]
     Active Substance: INTERFERON BETA-1B

REACTIONS (6)
  - Alopecia [Recovered/Resolved]
  - Paraesthesia [Recovered/Resolved]
  - Sinusitis [Recovered/Resolved]
  - Tonsillitis [Recovered/Resolved]
  - Decreased appetite [Recovered/Resolved]
  - Bronchitis [Recovered/Resolved]

NARRATIVE: CASE EVENT DATE: 2014
